FAERS Safety Report 6787501-6 (Version None)
Quarter: 2010Q2

REPORT INFORMATION
  Report Type: 
  Country: None (occurrence: None)
  Receive Date: 20100623
  Receipt Date: 20090310
  Transmission Date: 20101027
  Serious: Yes (Other)
  Sender: FDA-Public Use
  Company Number: US-PFIZER INC-2006102036

PATIENT
  Sex: Female
  Weight: 77 kg

DRUGS (8)
  1. PROVERA [Suspect]
     Indication: HORMONE REPLACEMENT THERAPY
     Dosage: 10 MG, UNK
  2. PROVERA [Suspect]
     Dosage: 0.25 MG, UNK
  3. PREMARIN [Suspect]
     Indication: IRRITABILITY
     Dosage: 0.25 MG, UNK
  4. PREMARIN [Suspect]
     Indication: HOT FLUSH
  5. PREMPRO [Suspect]
     Indication: IRRITABILITY
     Dosage: 0.625 MG, UNK
  6. PREMPRO [Suspect]
     Indication: HOT FLUSH
     Dosage: 0.25 MG, UNK
  7. FELDENE [Concomitant]
     Indication: ARTHRITIS
     Dosage: UNK
     Dates: start: 19870101
  8. LEVOXYL [Concomitant]
     Indication: HYPOTHYROIDISM
     Dosage: UNK
     Dates: start: 19890101

REACTIONS (1)
  - BREAST CANCER FEMALE [None]
